FAERS Safety Report 17424235 (Version 1)
Quarter: 2020Q1

REPORT INFORMATION
  Report Type: Spontaneous
  Country: JP (occurrence: JP)
  Receive Date: 20200217
  Receipt Date: 20200217
  Transmission Date: 20200409
  Serious: Yes (Death, Disabling)
  Sender: FDA-Public Use
  Company Number: JP-ROCHE-2547258

PATIENT
  Age: 46 Year
  Sex: Male
  Weight: 62 kg

DRUGS (14)
  1. CAMPTO [Concomitant]
     Active Substance: IRINOTECAN
     Route: 041
     Dates: start: 2018, end: 20180925
  2. AVASTIN [Suspect]
     Active Substance: BEVACIZUMAB
     Dosage: DOSAGE IS UNCERTAIN.
     Route: 041
     Dates: start: 20170726
  3. AVASTIN [Suspect]
     Active Substance: BEVACIZUMAB
     Route: 041
     Dates: start: 20180221, end: 2018
  4. LEVOFOLINATE CALCIUM [Concomitant]
     Active Substance: LEVOLEUCOVORIN CALCIUM
     Indication: RECTAL CANCER
     Dosage: DOSAGE IS UNCERTAIN.
     Route: 041
     Dates: start: 20170104, end: 20170718
  5. LEVOFOLINATE CALCIUM [Concomitant]
     Active Substance: LEVOLEUCOVORIN CALCIUM
     Dosage: DOSAGE IS UNCERTAIN.
     Route: 041
     Dates: start: 20170726, end: 20180807
  6. FLUOROURACIL. [Concomitant]
     Active Substance: FLUOROURACIL
     Dosage: DOSAGE IS UNCERTAIN.
     Route: 041
     Dates: start: 20170726, end: 20180807
  7. TEGAFUR,GIMERACIL AND OTERACIL POTASSIUM [Concomitant]
     Active Substance: GIMERACIL\OTERACIL\TEGAFUR
     Indication: RECTAL CANCER
     Dosage: DOSAGE IS UNCERTAIN.
     Route: 048
     Dates: start: 20180725, end: 20180925
  8. AVASTIN [Suspect]
     Active Substance: BEVACIZUMAB
     Indication: RECTAL CANCER
     Route: 041
     Dates: start: 20170104, end: 20170201
  9. AVASTIN [Suspect]
     Active Substance: BEVACIZUMAB
     Route: 041
     Dates: start: 2018, end: 20180925
  10. CAMPTO [Concomitant]
     Active Substance: IRINOTECAN
     Indication: RECTAL CANCER
     Route: 041
     Dates: start: 20170726, end: 2018
  11. OXALIPLATIN. [Concomitant]
     Active Substance: OXALIPLATIN
     Indication: RECTAL CANCER
     Route: 041
     Dates: start: 20170104, end: 20170507
  12. OXALIPLATIN. [Concomitant]
     Active Substance: OXALIPLATIN
     Dosage: DOSAGE IS UNCERTAIN.
     Route: 041
     Dates: start: 2017, end: 20170718
  13. FLUOROURACIL. [Concomitant]
     Active Substance: FLUOROURACIL
     Indication: RECTAL CANCER
     Dosage: DOSAGE IS UNCERTAIN.
     Route: 040
  14. FLUOROURACIL. [Concomitant]
     Active Substance: FLUOROURACIL
     Route: 041
     Dates: start: 20170104, end: 20170718

REACTIONS (2)
  - Renal impairment [Not Recovered/Not Resolved]
  - Rectal cancer [Fatal]

NARRATIVE: CASE EVENT DATE: 20180926
